FAERS Safety Report 7785600-3 (Version None)
Quarter: 2011Q3

REPORT INFORMATION
  Report Type: 
  Country: None (occurrence: None)
  Receive Date: 20110929
  Receipt Date: 20110919
  Transmission Date: 20111222
  Serious: Yes (Life-Threatening, Hospitalization, Congenital Anomaly, Other)
  Sender: FDA-Public Use
  Company Number: DE-RANBAXY-2011RR-48410

PATIENT
  Sex: Male
  Weight: 3.45 kg

DRUGS (4)
  1. THYRONAJOD [Concomitant]
     Dosage: UNK
     Route: 064
     Dates: start: 20100327, end: 20110106
  2. SERTRALINE HYDROCHLORIDE [Suspect]
     Dosage: 150 MG/DAY
     Route: 064
     Dates: start: 20100512, end: 20110106
  3. FOL 400 [Concomitant]
     Indication: PROPHYLAXIS OF NEURAL TUBE DEFECT
     Dosage: 0.4 MG/DAY
     Route: 064
     Dates: start: 20100327, end: 20100903
  4. PROMETHAZINE [Suspect]
     Dosage: 60 MG/DAY
     Route: 064
     Dates: start: 20100327, end: 20110106

REACTIONS (2)
  - FALLOT'S TETRALOGY [None]
  - NEONATAL RESPIRATORY DISTRESS SYNDROME [None]
